FAERS Safety Report 5070761-X (Version None)
Quarter: 2006Q3

REPORT INFORMATION
  Report Type: 
  Country: None (occurrence: None)
  Receive Date: 20060804
  Receipt Date: 20060725
  Transmission Date: 20061208
  Serious: Yes (Hospitalization)
  Sender: FDA-Public Use
  Company Number: FR-BRISTOL-MYERS SQUIBB COMPANY-13459466

PATIENT
  Age: 58 Year
  Sex: Female

DRUGS (6)
  1. GLUCOPHAGE [Suspect]
     Route: 048
  2. BISOPROLOL FUMARATE [Concomitant]
     Route: 048
  3. VASTEN TABS 20 MG [Concomitant]
     Route: 048
  4. ASPIRIN [Concomitant]
     Dosage: DOSAGE FORM = 1 SACHET(160MG)
     Route: 048
  5. INSULATARD NPH HUMAN [Concomitant]
  6. NOVOMIX [Concomitant]

REACTIONS (8)
  - ABDOMINAL PAIN [None]
  - ASCITES [None]
  - DIARRHOEA [None]
  - GASTROINTESTINAL HAEMORRHAGE [None]
  - GASTROINTESTINAL OEDEMA [None]
  - HAEMATEMESIS [None]
  - LACTIC ACIDOSIS [None]
  - SHOCK [None]
